FAERS Safety Report 26000688 (Version 2)
Quarter: 2025Q4

REPORT INFORMATION
  Report Type: Spontaneous
  Country: JP (occurrence: JP)
  Receive Date: 20251105
  Receipt Date: 20251107
  Transmission Date: 20260117
  Serious: Yes (Hospitalization, Other)
  Sender: ALEXION PHARMACEUTICALS
  Company Number: JP-ASTRAZENECA-202510JPN029609JP

PATIENT
  Age: 70 Year
  Sex: Male
  Weight: 57.6 kg

DRUGS (4)
  1. FASENRA [Suspect]
     Active Substance: BENRALIZUMAB
     Route: 065
  2. FASENRA [Suspect]
     Active Substance: BENRALIZUMAB
  3. TEZEPELUMAB [Suspect]
     Active Substance: TEZEPELUMAB
     Route: 065
  4. TEZEPELUMAB [Suspect]
     Active Substance: TEZEPELUMAB

REACTIONS (11)
  - Asthma [Unknown]
  - Immunoglobulin G4 related disease [Unknown]
  - Respiratory failure [Unknown]
  - Staphylococcal infection [Unknown]
  - Hypersensitivity pneumonitis [Unknown]
  - Chronic sinusitis [Unknown]
  - Bronchoalveolar lavage abnormal [Unknown]
  - Thirst [Unknown]
  - Salivary gland disorder [Unknown]
  - Fractional exhaled nitric oxide abnormal [Unknown]
  - Drug ineffective [Unknown]
